FAERS Safety Report 6262702-4 (Version None)
Quarter: 2009Q3

REPORT INFORMATION
  Report Type: 
  Country: None (occurrence: None)
  Receive Date: 20090709
  Receipt Date: 20090701
  Transmission Date: 20100115
  Serious: Yes (Death)
  Sender: FDA-Public Use
  Company Number: US-GENENTECH-285974

PATIENT
  Sex: Female

DRUGS (31)
  1. RANIBIZUMAB [Suspect]
     Indication: DIABETIC RETINAL OEDEMA
     Dosage: UNK
     Route: 031
     Dates: start: 20080507, end: 20090605
  2. FUROSEMIDE [Concomitant]
     Indication: CARDIAC FAILURE CONGESTIVE
     Dosage: UNK
  3. GABAPENTIN [Concomitant]
     Indication: DIABETES MELLITUS
     Dosage: UNK
  4. RISPERDAL [Concomitant]
     Indication: NERVOUS SYSTEM DISORDER
     Dosage: UNK
     Dates: start: 20070101
  5. RISPERDAL [Concomitant]
     Indication: CEREBROVASCULAR ACCIDENT
  6. RAMIPRIL [Concomitant]
     Indication: BLOOD PRESSURE
     Dosage: UNK
  7. SIMVASTATIN [Concomitant]
     Indication: DIABETES MELLITUS
     Dosage: UNK
     Dates: start: 20070501
  8. NEXIUM [Concomitant]
     Indication: GASTROOESOPHAGEAL REFLUX DISEASE
     Dosage: UNK
  9. LANTUS [Concomitant]
     Indication: DIABETES MELLITUS
     Dosage: UNK
     Dates: start: 20071201
  10. METAMUCIL [Concomitant]
     Indication: DIARRHOEA
     Dosage: UNK
     Dates: start: 20080801
  11. METFORMIN HCL [Concomitant]
     Indication: DIABETES MELLITUS
     Dosage: UNK
     Dates: start: 20081001
  12. ENABLEX [Concomitant]
     Indication: HYPERTONIC BLADDER
     Dosage: UNK
     Dates: start: 20081001
  13. CARVEDILOL [Concomitant]
     Indication: CARDIAC FAILURE CONGESTIVE
     Dosage: UNK
     Dates: start: 20081110
  14. IRON SUPPLEMENT [Concomitant]
     Indication: IRON DEFICIENCY
     Dosage: UNK
     Dates: start: 20081110
  15. PLAVIX [Concomitant]
     Indication: CORONARY ARTERY DISEASE
     Dosage: UNK
     Dates: start: 20081110
  16. NOVOLOG [Concomitant]
     Indication: DIABETES MELLITUS
     Dosage: UNK
     Dates: start: 20090319
  17. FERRIC SODIUM GLUCONATE [Concomitant]
     Indication: IRON DEFICIENCY
     Dosage: UNK
     Dates: start: 20081222
  18. PROTONIX [Concomitant]
     Indication: GASTROOESOPHAGEAL REFLUX DISEASE
     Dosage: UNK
     Dates: start: 20081222
  19. ACETAMINOPHEN [Concomitant]
     Indication: PAIN
     Dosage: UNK
     Dates: start: 20081222
  20. MEDICATION (UNK INGREDIENT) [Concomitant]
     Indication: ANAEMIA
     Dosage: UNK
     Dates: start: 20090101
  21. VITAMIN B-12 [Concomitant]
     Indication: ANAEMIA
     Dosage: UNK
     Dates: start: 20090101
  22. ALBUTEROL [Concomitant]
     Indication: DYSPNOEA
     Dosage: UNK
     Dates: start: 20090120
  23. MEDICATION (UNK INGREDIENT) [Concomitant]
     Indication: HYPERCHOLESTEROLAEMIA
     Dosage: UNK
     Dates: start: 20081222
  24. MEDICATION (UNK INGREDIENT) [Concomitant]
     Indication: PAIN
     Dosage: UNK
     Dates: start: 20081222
  25. MEDICATION (UNK INGREDIENT) [Concomitant]
     Dosage: UNK
     Dates: start: 20090101
  26. OXYGEN [Concomitant]
     Indication: CARDIAC FAILURE CONGESTIVE
     Dosage: UNK
     Dates: start: 20090101
  27. COLACE [Concomitant]
     Indication: CONSTIPATION
     Dosage: UNK
     Dates: start: 20090207
  28. ZETIA [Concomitant]
     Indication: HYPERCHOLESTEROLAEMIA
     Dosage: UNK
     Dates: start: 20090207
  29. MIRALAX [Concomitant]
     Indication: CONSTIPATION
     Dosage: UNK
     Dates: start: 20090207
  30. ALDACTONE [Concomitant]
     Indication: CARDIAC FAILURE CONGESTIVE
     Dosage: UNK
     Dates: start: 20090207
  31. ARICEPT [Concomitant]
     Indication: ANAEMIA
     Dosage: UNK
     Dates: start: 20090121

REACTIONS (1)
  - DEATH [None]
